FAERS Safety Report 18527241 (Version 1)
Quarter: 2020Q4

REPORT INFORMATION
  Report Type: Spontaneous
  Country: CH (occurrence: CH)
  Receive Date: 20201120
  Receipt Date: 20201120
  Transmission Date: 20210114
  Serious: Yes (Hospitalization, Other)
  Sender: FDA-Public Use
  Company Number: CH-PFIZER INC-2020452923

PATIENT
  Age: 47 Year
  Sex: Female
  Weight: 68 kg

DRUGS (7)
  1. PLAQUENIL [Concomitant]
     Active Substance: HYDROXYCHLOROQUINE SULFATE
     Dosage: UNK
  2. REDORMIN [HUMULUS LUPULUS HOPS;VALERIANA OFFICINALIS ROOT] [Suspect]
     Active Substance: HERBALS\HOPS\VALERIAN
     Dosage: 500 MG, SINGLE
     Dates: start: 20200909
  3. PREVNAR 13 [Suspect]
     Active Substance: PNEUMOCOCCAL 13-VALENT CONJUGATE VACCINE
     Indication: IMMUNISATION
     Dosage: SINGLE DOSE
     Dates: start: 20200909, end: 20200909
  4. NOLVADEX [Concomitant]
     Active Substance: TAMOXIFEN CITRATE
     Dosage: UNK
  5. VI-DE 3 [Concomitant]
     Active Substance: CHOLECALCIFEROL
     Dosage: UNK
  6. SALAZOPYRIN EN [Suspect]
     Active Substance: SULFASALAZINE
     Indication: RHEUMATOID ARTHRITIS
     Dosage: 500 MG
     Route: 048
     Dates: start: 20200814
  7. MALTOFER [FERRIC HYDROXIDE POLYMALTOSE COMPLEX] [Concomitant]
     Active Substance: IRON POLYMALTOSE
     Dosage: UNK

REACTIONS (8)
  - Product use issue [Unknown]
  - Rash maculo-papular [Unknown]
  - C-reactive protein increased [Unknown]
  - Off label use [Unknown]
  - Drug reaction with eosinophilia and systemic symptoms [Unknown]
  - Swelling face [Recovered/Resolved]
  - Rash pruritic [Unknown]
  - Pyrexia [Recovered/Resolved]

NARRATIVE: CASE EVENT DATE: 202009
